FAERS Safety Report 14861505 (Version 1)
Quarter: 2018Q2

REPORT INFORMATION
  Report Type: Spontaneous
  Country: GB (occurrence: GB)
  Receive Date: 20180508
  Receipt Date: 20180508
  Transmission Date: 20180711
  Serious: Yes (Death)
  Sender: FDA-Public Use
  Company Number: GB-ABBVIE-18K-167-2347966-00

PATIENT
  Age: 50 Year
  Sex: Male
  Weight: 112 kg

DRUGS (2)
  1. METHOTREXATE. [Concomitant]
     Active Substance: METHOTREXATE
     Indication: JUVENILE PSORIATIC ARTHRITIS
     Dosage: ON FOR A NUMBER OF YEARS
  2. HUMIRA [Suspect]
     Active Substance: ADALIMUMAB
     Indication: JUVENILE PSORIATIC ARTHRITIS
     Route: 058
     Dates: start: 20110405, end: 20180101

REACTIONS (5)
  - Pneumonia [Fatal]
  - Fatigue [Fatal]
  - Circulatory collapse [Fatal]
  - Necrotising fasciitis [Fatal]
  - Influenza like illness [Fatal]

NARRATIVE: CASE EVENT DATE: 20171220
